FAERS Safety Report 5576729-9 (Version None)
Quarter: 2007Q4

REPORT INFORMATION
  Report Type: 
  Country: None (occurrence: None)
  Receive Date: 20071228
  Receipt Date: 20071220
  Transmission Date: 20080405
  Serious: Yes (Other)
  Sender: FDA-Public Use
  Company Number: US-JNJFOC-20071205193

PATIENT
  Age: 17 Year
  Sex: Male
  Weight: 46.72 kg

DRUGS (8)
  1. INVEGA [Suspect]
     Indication: THINKING ABNORMAL
     Route: 048
  2. INVEGA [Suspect]
     Indication: OBSESSIVE-COMPULSIVE DISORDER
     Route: 048
  3. ATIVAN [Concomitant]
     Indication: AGITATION
     Route: 065
  4. ATIVAN [Concomitant]
     Indication: DELUSION
     Route: 065
  5. ATIVAN [Concomitant]
     Indication: HALLUCINATION
     Route: 065
  6. CELEXA [Concomitant]
     Indication: OBSESSIVE-COMPULSIVE DISORDER
     Route: 048
  7. LEXAPRO [Concomitant]
     Indication: ANXIETY
     Route: 048
  8. MINOCYCLINE HCL [Concomitant]
     Indication: ACNE
     Route: 048

REACTIONS (3)
  - ATRIOVENTRICULAR BLOCK SECOND DEGREE [None]
  - FATIGUE [None]
  - TACHYCARDIA [None]
